FAERS Safety Report 8722830 (Version 2)
Quarter: 2015Q2

REPORT INFORMATION
  Report Type: Report from Study
  Country: US (occurrence: US)
  Receive Date: 20120814
  Receipt Date: 20150625
  Transmission Date: 20150821
  Serious: Yes (Hospitalization)
  Sender: FDA-Public Use
  Company Number: US-ROCHE-1100906

PATIENT
  Sex: Male

DRUGS (9)
  1. HEPARIN [Concomitant]
     Active Substance: HEPARIN SODIUM
     Dosage: 5000 UNITS
     Route: 042
  2. NITROGLYCERIN DRIP [Concomitant]
     Dosage: PER HOUR
     Route: 065
  3. XYLOCAINE [Concomitant]
     Active Substance: LIDOCAINE HYDROCHLORIDE
     Dosage: 2 MG/MIN
     Route: 065
  4. ACTIVASE [Suspect]
     Active Substance: ALTEPLASE
     Indication: ACUTE MYOCARDIAL INFARCTION
     Route: 042
     Dates: start: 19940720
  5. OXYGEN. [Concomitant]
     Active Substance: OXYGEN
     Dosage: 3L PER MINUTES
     Route: 045
  6. NITROGLYCERIN DRIP [Concomitant]
     Dosage: PER HOUR
     Route: 065
  7. MORPHINE SULFATE. [Concomitant]
     Active Substance: MORPHINE SULFATE
     Route: 042
  8. NITROGLYCERIN DRIP [Concomitant]
     Dosage: PER HOURS (25 MIC/MIN)
     Route: 065
  9. MORPHINE SULFATE. [Concomitant]
     Active Substance: MORPHINE SULFATE
     Indication: CHEST PAIN
     Route: 042

REACTIONS (4)
  - Chest pain [Recovered/Resolved]
  - Pyrexia [Unknown]
  - Ventricular extrasystoles [Unknown]
  - Dysuria [Unknown]
